FAERS Safety Report 15156494 (Version 2)
Quarter: 2019Q4

REPORT INFORMATION
  Report Type: Spontaneous
  Country: CA (occurrence: CA)
  Receive Date: 20180717
  Receipt Date: 20191021
  Transmission Date: 20200122
  Serious: Yes (Life-Threatening)
  Sender: FDA-Public Use
  Company Number: CA-TEVA-2018-CA-924442

PATIENT
  Age: 62 Year
  Sex: Male
  Weight: 100 kg

DRUGS (10)
  1. IPRATROPIUM/SALBUTAMOL [Concomitant]
     Active Substance: ALBUTEROL\IPRATROPIUM BROMIDE
  2. THYROXINE [Concomitant]
     Active Substance: LEVOTHYROXINE
  3. ENOXAPARIN [Concomitant]
     Active Substance: ENOXAPARIN
  4. AZITHROMYCIN ANHYDROUS. [Suspect]
     Active Substance: AZITHROMYCIN ANHYDROUS
     Indication: PNEUMONIA MYCOPLASMAL
     Dosage: 500 MILLIGRAM DAILY;
     Route: 042
  5. BISOPROLOL [Concomitant]
     Active Substance: BISOPROLOL
  6. ZOPICLONE [Concomitant]
     Active Substance: ZOPICLONE
  7. PREDNISONE. [Concomitant]
     Active Substance: PREDNISONE
  8. AZITHROMYCIN ANHYDROUS. [Suspect]
     Active Substance: AZITHROMYCIN ANHYDROUS
     Indication: PNEUMONIA MYCOPLASMAL
     Route: 048
  9. ATORVASTATIN CALCIUM. [Concomitant]
     Active Substance: ATORVASTATIN CALCIUM
  10. FERROUS GLUCONATE [Concomitant]
     Active Substance: FERROUS GLUCONATE

REACTIONS (7)
  - Atrial fibrillation [Not Recovered/Not Resolved]
  - Cardiac arrest [Not Recovered/Not Resolved]
  - Resuscitation [Not Recovered/Not Resolved]
  - Cardioversion [Not Recovered/Not Resolved]
  - Torsade de pointes [Not Recovered/Not Resolved]
  - Atrial flutter [Not Recovered/Not Resolved]
  - Hyperbaric oxygen therapy [Not Recovered/Not Resolved]
